FAERS Safety Report 12122460 (Version 1)
Quarter: 2016Q1

REPORT INFORMATION
  Report Type: Report from Study
  Country: US (occurrence: US)
  Receive Date: 20160226
  Receipt Date: 20160226
  Transmission Date: 20160526
  Serious: Yes (Death, Other)
  Sender: FDA-Public Use
  Company Number: US-AMGEN-USASP2015118036

PATIENT
  Age: 78 Year
  Sex: Female

DRUGS (2)
  1. PROLIA [Suspect]
     Active Substance: DENOSUMAB
     Indication: SENILE OSTEOPOROSIS
     Dosage: UNK
     Route: 065
     Dates: start: 20150421
  2. DETROL LA [Concomitant]
     Active Substance: TOLTERODINE TARTRATE
     Dosage: 4 MG, UNK

REACTIONS (4)
  - Injection site rash [Recovered/Resolved]
  - Death [Fatal]
  - Drug hypersensitivity [Unknown]
  - Rash generalised [Unknown]
